FAERS Safety Report 4727653-2 (Version None)
Quarter: 2005Q3

REPORT INFORMATION
  Report Type: 
  Country: None (occurrence: None)
  Receive Date: 20050728
  Receipt Date: 20050728
  Transmission Date: 20060218
  Serious: Yes (Hospitalization, Other)
  Sender: FDA-Public Use
  Company Number: None

PATIENT
  Sex: Male
  Weight: 72.4 kg

DRUGS (2)
  1. TEMODAR [Suspect]
     Indication: OLIGODENDROGLIOMA
     Dosage: SEE IMAGE
     Dates: start: 20050525, end: 20050714
  2. RADIATION [Suspect]
     Dates: start: 20050525

REACTIONS (2)
  - CHEST PAIN [None]
  - PULMONARY EMBOLISM [None]
